FAERS Safety Report 8141596-6 (Version None)
Quarter: 2012Q1

REPORT INFORMATION
  Report Type: 
  Country: None (occurrence: None)
  Receive Date: 20120103
  Receipt Date: 20111024
  Transmission Date: 20120608
  Serious: No
  Sender: FDA-Public Use
  Company Number: AE-2011-002632

PATIENT
  Sex: Female
  Weight: 47.6277 kg

DRUGS (3)
  1. INCIVEK [Suspect]
     Dosage: 2250 MG (750 MG,3 IN 1 D),ORAL
     Route: 048
     Dates: start: 20110930
  2. PEGASYS [Concomitant]
  3. RIBAVIRIN [Concomitant]

REACTIONS (5)
  - LETHARGY [None]
  - ARTHRALGIA [None]
  - IRRITABILITY [None]
  - VOMITING [None]
  - MOOD SWINGS [None]
